FAERS Safety Report 14759299 (Version 1)
Quarter: 2018Q2

REPORT INFORMATION
  Report Type: Spontaneous
  Country: SE (occurrence: SE)
  Receive Date: 20180413
  Receipt Date: 20180413
  Transmission Date: 20180711
  Serious: Yes (Disabling, Other)
  Sender: FDA-Public Use
  Company Number: SE-PFIZER INC-2018145313

PATIENT
  Age: 72 Year
  Sex: Male

DRUGS (11)
  1. DOXAZOSIN MESILATE [Suspect]
     Active Substance: DOXAZOSIN MESYLATE
     Indication: PROSTATOMEGALY
     Dosage: UNK, DAILY
     Route: 048
     Dates: start: 20160310
  2. PREDNISOLON ALTERNOVA [Suspect]
     Active Substance: PREDNISOLONE
     Indication: POLYMYALGIA RHEUMATICA
     Dosage: 20 MG, DAILY
     Route: 048
     Dates: start: 20160623
  3. ALENDRONAT [Concomitant]
     Active Substance: ALENDRONATE SODIUM
     Dosage: UNK
     Dates: start: 20160707, end: 20170202
  4. LEVAXIN [Concomitant]
     Active Substance: LEVOTHYROXINE SODIUM
     Dosage: UNK
  5. PREDNISOLON ALTERNOVA [Suspect]
     Active Substance: PREDNISOLONE
     Dosage: 20 MG, DAILY
     Route: 048
  6. OMEPRAZOL [Concomitant]
     Active Substance: OMEPRAZOLE
     Dosage: UNK
  7. FINASTERID [Concomitant]
     Active Substance: FINASTERIDE
     Dosage: UNK
  8. BEVIPLEX FORTE [Concomitant]
     Dosage: UNK
  9. EMGESAN [Concomitant]
     Dosage: UNK
  10. METOPROLOL. [Concomitant]
     Active Substance: METOPROLOL
     Dosage: UNK
  11. KALCIPOS-D FORTE [Concomitant]
     Active Substance: CALCIUM CARBONATE\CHOLECALCIFEROL
     Dosage: UNK

REACTIONS (11)
  - Sinus pain [Not Recovered/Not Resolved]
  - Tooth erosion [Not Recovered/Not Resolved]
  - Oral fungal infection [Not Recovered/Not Resolved]
  - Dysgeusia [Not Recovered/Not Resolved]
  - Dry mouth [Not Recovered/Not Resolved]
  - Skin fragility [Not Recovered/Not Resolved]
  - Skin discolouration [Not Recovered/Not Resolved]
  - Dry eye [Not Recovered/Not Resolved]
  - Dental caries [Not Recovered/Not Resolved]
  - Tendon rupture [Not Recovered/Not Resolved]
  - Skin ulcer [Not Recovered/Not Resolved]

NARRATIVE: CASE EVENT DATE: 2016
